FAERS Safety Report 14800869 (Version 1)
Quarter: 2018Q2

REPORT INFORMATION
  Report Type: Report from Study
  Country: ES (occurrence: ES)
  Receive Date: 20180424
  Receipt Date: 20180424
  Transmission Date: 20180711
  Serious: Yes (Hospitalization)
  Sender: FDA-Public Use
  Company Number: ES-TEVA-2018-ES-885241

PATIENT
  Age: 80 Year
  Sex: Male

DRUGS (6)
  1. SIMVASTATINA (1023A) [Suspect]
     Active Substance: SIMVASTATIN
     Indication: TRANSIENT ISCHAEMIC ATTACK
     Dosage: 0-0-1
     Route: 048
     Dates: start: 20170822, end: 20170903
  2. METFORMINA (1359A) [Concomitant]
     Active Substance: METFORMIN HYDROCHLORIDE
     Dosage: 1/2-0-1/2
     Route: 048
     Dates: start: 20170809, end: 20170903
  3. LIXIANA 30 MG COMPRIMIDOS RECUBIERTOS CON PELICULA 100 COMPRIMIDOS [Concomitant]
     Dosage: 0-1-0
     Route: 048
     Dates: start: 20170809
  4. HIGROTONA 50 MG , 30 COMPRIMIDOS [Suspect]
     Active Substance: CHLORTHALIDONE
     Indication: HYPERTENSION
     Dosage: 1/2-0-0
     Route: 048
     Dates: start: 20090713, end: 20170903
  5. VALSARTAN (7423A) [Suspect]
     Active Substance: VALSARTAN
     Indication: HYPERTENSION
     Dosage: 160 MG 1-0-0
     Route: 048
     Dates: start: 20170809
  6. BISOPROLOL (2328A) [Concomitant]
     Active Substance: BISOPROLOL
     Dosage: 2,5 MG 1-0-0
     Route: 048
     Dates: start: 20170809

REACTIONS (2)
  - Rhabdomyolysis [Unknown]
  - Acute kidney injury [Unknown]

NARRATIVE: CASE EVENT DATE: 20170903
